FAERS Safety Report 11403673 (Version 5)
Quarter: 2016Q4

REPORT INFORMATION
  Report Type: Report from Study
  Country: US (occurrence: US)
  Receive Date: 20150821
  Receipt Date: 20161220
  Transmission Date: 20170206
  Serious: Yes (Other)
  Sender: FDA-Public Use
  Company Number: US-BAYER-2015-401153

PATIENT
  Age: 67 Year
  Sex: Male

DRUGS (3)
  1. NEXAVAR [Suspect]
     Active Substance: SORAFENIB
     Indication: HEPATOCELLULAR CARCINOMA
     Dosage: 400 MG, BID
     Route: 048
     Dates: start: 20150802, end: 20150812
  2. NEXAVAR [Suspect]
     Active Substance: SORAFENIB
     Indication: HEPATOCELLULAR CARCINOMA
     Dosage: 200 MG, BID
     Route: 048
  3. NEXAVAR [Suspect]
     Active Substance: SORAFENIB
     Indication: HEPATOCELLULAR CARCINOMA
     Dosage: 400 MG, QD(QHS)
     Route: 048
     Dates: start: 2015, end: 20151126

REACTIONS (10)
  - Decreased appetite [None]
  - Blister [Recovering/Resolving]
  - Tooth fracture [None]
  - Weight bearing difficulty [None]
  - Muscular weakness [Not Recovered/Not Resolved]
  - Pain in extremity [None]
  - Paraesthesia [None]
  - Swollen tongue [None]
  - Dry skin [None]
  - Lip swelling [None]

NARRATIVE: CASE EVENT DATE: 201508
